FAERS Safety Report 6579234-6 (Version None)
Quarter: 2010Q1

REPORT INFORMATION
  Report Type: 
  Country: None (occurrence: None)
  Receive Date: 20100212
  Receipt Date: 20100201
  Transmission Date: 20100710
  Serious: Yes (Hospitalization, Other)
  Sender: FDA-Public Use
  Company Number: US-JNJFOC-20100201087

PATIENT
  Sex: Male
  Weight: 43.6 kg

DRUGS (4)
  1. REMICADE [Suspect]
     Indication: INFLAMMATORY BOWEL DISEASE
     Dosage: 2ND DOSE
     Route: 042
  2. REMICADE [Suspect]
     Route: 042
  3. PREDNISONE [Concomitant]
  4. METRONIDAZOLE [Concomitant]

REACTIONS (1)
  - COLITIS [None]
